FAERS Safety Report 5259735-3 (Version None)
Quarter: 2007Q1

REPORT INFORMATION
  Report Type: 
  Country: None (occurrence: None)
  Receive Date: 20061117
  Receipt Date: 20060811
  Transmission Date: 20070707
  Serious: Yes (Disabling, Other)
  Sender: FDA-Public Use
  Company Number: US-JNJFOC-20060602082

PATIENT
  Age: 32 Year
  Sex: Female
  Weight: 83.0083 kg

DRUGS (7)
  1. LEVAQUIN [Suspect]
     Indication: BRONCHITIS
     Dosage: 500 MG, 1 IN 1 DAY
     Dates: start: 20041117, end: 20041126
  2. LEVAQUIN [Suspect]
     Indication: MUSCULOSKELETAL PAIN
     Dosage: 500 MG, 1 IN 1 DAY
     Dates: start: 20041117, end: 20041126
  3. LEVAQUIN [Suspect]
     Indication: SINUSITIS
     Dosage: 500 MG, 1 IN 1 DAY
     Dates: start: 20041117, end: 20041126
  4. LEVAQUIN [Suspect]
     Indication: BRONCHITIS
     Dosage: 500 MG, 1 IN 1 DAY
     Dates: start: 20050301, end: 20050301
  5. LEVAQUIN [Suspect]
     Indication: MUSCULOSKELETAL PAIN
     Dosage: 500 MG, 1 IN 1 DAY
     Dates: start: 20050301, end: 20050301
  6. LEVAQUIN [Suspect]
     Indication: SINUSITIS
     Dosage: 500 MG, 1 IN 1 DAY
     Dates: start: 20050301, end: 20050301
  7. LORTAB [Concomitant]

REACTIONS (2)
  - MUSCULAR WEAKNESS [None]
  - PAIN IN EXTREMITY [None]
